FAERS Safety Report 23043693 (Version 1)
Quarter: 2023Q4

REPORT INFORMATION
  Report Type: Spontaneous
  Country: US (occurrence: US)
  Receive Date: 20231009
  Receipt Date: 20231009
  Transmission Date: 20240109
  Serious: No
  Sender: FDA-Public Use
  Company Number: US-SANDOZ-SDZ2023US039518

PATIENT

DRUGS (4)
  1. DOXYCYCLINE [Suspect]
     Active Substance: DOXYCYCLINE
     Indication: Product used for unknown indication
     Route: 065
  2. INLYTA [Suspect]
     Active Substance: AXITINIB
     Indication: Product used for unknown indication
     Dosage: 1 DF, Q12H (TAKE IN ADDITION TO 2 MG TWICE DAILY (TOTAL  AXITINIB DOSE WILL BE 7 MG TWICE DAILY)
     Route: 048
     Dates: start: 20230919
  3. INLYTA [Suspect]
     Active Substance: AXITINIB
     Dosage: 2 DF, Q12H STRENGTH:  1 MG(TAKE IN ADDITION TO 5 MG TWICE DAILY (TOTAL AXITINIB) DOSE WILL BE 7 MG T
     Route: 048
     Dates: start: 20230914
  4. ZOMETA [Suspect]
     Active Substance: ZOLEDRONIC ACID
     Indication: Product used for unknown indication
     Route: 065

REACTIONS (1)
  - Drug hypersensitivity [Unknown]
